FAERS Safety Report 9122984 (Version 1)
Quarter: 2013Q1

REPORT INFORMATION
  Report Type: Spontaneous
  Country: US (occurrence: None)
  Receive Date: 20130130
  Receipt Date: 20130130
  Transmission Date: 20140127
  Serious: Yes (Death)
  Sender: FDA-Public Use
  Company Number: B0859235A

PATIENT
  Age: 15 Year
  Sex: Female

DRUGS (7)
  1. METHADONE HYDROCHLORIDE [Suspect]
     Dosage: UNK / UNK / ORAL?UNK
     Route: 048
  2. ONDANSETRON HYDROCHLORIDE [Suspect]
     Dosage: UNK / UNK / ORAL?UNK
     Route: 048
  3. THYROXINE SODIUM [Suspect]
     Dosage: UNK / UNK / ORAL?UNK
     Route: 048
  4. IBUPROFEN [Suspect]
     Dosage: UNK / UNK / ORAL?UNK
     Route: 048
  5. BACLOFEN [Suspect]
     Dosage: UNK / UNK / ORAL?UNK
     Route: 048
  6. SERTRALINE [Suspect]
     Dosage: UNK / UNK / ORAL?UNK
     Route: 048
  7. HYDROCODONE + PARACETAMOL [Suspect]
     Dosage: UNK / UNK / ORAL?UNK
     Route: 048

REACTIONS (2)
  - Completed suicide [None]
  - Cardio-respiratory arrest [None]
